FAERS Safety Report 25840689 (Version 1)
Quarter: 2025Q3

REPORT INFORMATION
  Report Type: Spontaneous
  Country: TR (occurrence: TR)
  Receive Date: 20250924
  Receipt Date: 20250924
  Transmission Date: 20251021
  Serious: Yes (Other)
  Sender: GLAND PHARMA LTD
  Company Number: TR-GLANDPHARMA-TR-2025GLNLIT01880

PATIENT
  Age: 70 Year
  Sex: Female

DRUGS (2)
  1. CARBOPLATIN [Suspect]
     Active Substance: CARBOPLATIN
     Indication: Endometrial cancer stage IV
     Route: 065
  2. OMALIZUMAB [Concomitant]
     Active Substance: OMALIZUMAB
     Indication: Premedication
     Route: 065

REACTIONS (3)
  - Cardiac arrest [Unknown]
  - Type I hypersensitivity [Unknown]
  - Product use in unapproved indication [Unknown]
